FAERS Safety Report 6955481-6 (Version None)
Quarter: 2010Q3

REPORT INFORMATION
  Report Type: 
  Country: None (occurrence: None)
  Receive Date: 20100830
  Receipt Date: 20100819
  Transmission Date: 20110219
  Serious: Yes (Life-Threatening)
  Sender: FDA-Public Use
  Company Number: JP-PFIZER INC-2010093499

PATIENT
  Age: 77 Year
  Sex: Female
  Weight: 70 kg

DRUGS (8)
  1. ZYVOX [Suspect]
     Indication: STAPHYLOCOCCAL INFECTION
     Dosage: 600 MG, 2X/DAY
     Route: 041
     Dates: start: 20100629, end: 20100704
  2. ZYVOX [Suspect]
     Dosage: 600 MG, 2X/DAY
     Route: 048
     Dates: start: 20100705, end: 20100719
  3. HABEKACIN [Suspect]
     Indication: STAPHYLOCOCCAL INFECTION
     Dosage: 200 MG, 1X/DAY
     Route: 041
     Dates: start: 20100607, end: 20100614
  4. HABEKACIN [Suspect]
     Dosage: 200 MG, ALTERNATE DAY
     Route: 041
     Dates: start: 20100616, end: 20100628
  5. MINOCYCLINE HCL [Suspect]
     Indication: STAPHYLOCOCCAL INFECTION
     Dosage: 100 MG, 2X/DAY
     Route: 048
     Dates: start: 20100607
  6. NEOMALLERMIN TR [Concomitant]
     Dosage: 6 MG, 1X/DAY
     Route: 048
  7. AMLODIPINE [Concomitant]
     Dosage: 5 MG, 1X/DAY
     Route: 048
  8. LENDORMIN [Concomitant]
     Route: 048

REACTIONS (2)
  - DISSEMINATED INTRAVASCULAR COAGULATION [None]
  - PANCYTOPENIA [None]
